FAERS Safety Report 13807913 (Version 2)
Quarter: 2017Q3

REPORT INFORMATION
  Report Type: Spontaneous
  Country: US (occurrence: US)
  Receive Date: 20170728
  Receipt Date: 20170811
  Transmission Date: 20171127
  Serious: Yes (Hospitalization)
  Sender: FDA-Public Use
  Company Number: US-ROCHE-1968322

PATIENT
  Age: 70 Year
  Sex: Male

DRUGS (1)
  1. OCREVUS [Suspect]
     Active Substance: OCRELIZUMAB
     Indication: MULTIPLE SCLEROSIS
     Dosage: FIRST HALF DOSAGE
     Route: 065
     Dates: start: 20170712

REACTIONS (2)
  - Pyrexia [Unknown]
  - Cellulitis [Unknown]

NARRATIVE: CASE EVENT DATE: 20170713
